FAERS Safety Report 18211821 (Version 4)
Quarter: 2021Q3

REPORT INFORMATION
  Report Type: Report from Study
  Country: US (occurrence: US)
  Receive Date: 20200831
  Receipt Date: 20210823
  Transmission Date: 20211014
  Serious: Yes (Other)
  Sender: FDA-Public Use
  Company Number: US-ACADIA PHARMACEUTICALS INC.-ACA-2020-PIM-002618

PATIENT
  Sex: Female
  Weight: 52 kg

DRUGS (8)
  1. NUPLAZID [Suspect]
     Active Substance: PIMAVANSERIN TARTRATE
     Indication: DELUSION
     Dosage: HALF TABLET EVERY OTHER DAY
     Route: 048
     Dates: start: 2020, end: 202009
  2. NUPLAZID [Suspect]
     Active Substance: PIMAVANSERIN TARTRATE
     Indication: HALLUCINATION
     Dosage: BREAKING OPEN CAPSULE, DISSOLVING IN WATER AND TAKING HALF
     Route: 048
     Dates: start: 2020, end: 2020
  3. NUPLAZID [Suspect]
     Active Substance: PIMAVANSERIN TARTRATE
     Dosage: HALF TABLET
     Route: 048
     Dates: start: 2020
  4. NUPLAZID [Suspect]
     Active Substance: PIMAVANSERIN TARTRATE
     Dosage: 10 MILLIGRAM, QD
     Route: 048
  5. NUPLAZID [Suspect]
     Active Substance: PIMAVANSERIN TARTRATE
     Indication: HALLUCINATION
     Dosage: 10 MILLIGRAM EVERY OTHER DAY
     Route: 048
     Dates: start: 2020, end: 2020
  6. NUPLAZID [Suspect]
     Active Substance: PIMAVANSERIN TARTRATE
     Indication: PARKINSON^S DISEASE PSYCHOSIS
  7. NUPLAZID [Suspect]
     Active Substance: PIMAVANSERIN TARTRATE
     Indication: PARKINSON^S DISEASE PSYCHOSIS
     Dosage: 10 MILLIGRAM, QD
     Route: 048
     Dates: start: 2020, end: 2020
  8. NUPLAZID [Suspect]
     Active Substance: PIMAVANSERIN TARTRATE
     Indication: DELUSION
     Dosage: 34 MILLIGRAM, QD
     Route: 048
     Dates: start: 2020, end: 2020

REACTIONS (16)
  - Feeling hot [Unknown]
  - Peripheral swelling [Unknown]
  - Lip swelling [Unknown]
  - Mania [Unknown]
  - Dysphagia [Unknown]
  - Oropharyngeal pain [Unknown]
  - Product prescribing error [Recovered/Resolved]
  - Tremor [Unknown]
  - Wrong technique in product usage process [Recovered/Resolved]
  - Wrong technique in product usage process [Recovered/Resolved]
  - Dyspnoea [Unknown]
  - Malaise [Unknown]
  - Pruritus [Unknown]
  - Arrhythmia [Unknown]
  - Nightmare [Not Recovered/Not Resolved]
  - Prescribed underdose [Recovered/Resolved]

NARRATIVE: CASE EVENT DATE: 2020
